FAERS Safety Report 17030738 (Version 1)
Quarter: 2019Q4

REPORT INFORMATION
  Report Type: Spontaneous
  Country: FR (occurrence: FR)
  Receive Date: 20191114
  Receipt Date: 20191114
  Transmission Date: 20200122
  Serious: Yes (Hospitalization)
  Sender: FDA-Public Use
  Company Number: FR-JNJFOC-20191107729

PATIENT
  Sex: Male

DRUGS (1)
  1. RISPERDAL [Suspect]
     Active Substance: RISPERIDONE
     Indication: PRODUCT USED FOR UNKNOWN INDICATION
     Dosage: INITIATED ON 22 OR 23-OCT-2019
     Route: 048
     Dates: start: 201910

REACTIONS (5)
  - Incontinence [Unknown]
  - Dementia [Unknown]
  - Therapy cessation [Unknown]
  - Tongue disorder [Unknown]
  - Abnormal behaviour [Unknown]
